FAERS Safety Report 10389524 (Version 1)
Quarter: 2014Q3

REPORT INFORMATION
  Report Type: Spontaneous
  Country: US (occurrence: None)
  Receive Date: 20140812
  Receipt Date: 20140812
  Transmission Date: 20150326
  Serious: Yes (Hospitalization, Other)
  Sender: FDA-Public Use
  Company Number: ADR-2014-01398

PATIENT
  Age: 58 Year
  Sex: Male

DRUGS (3)
  1. BACLOFEN. [Suspect]
     Active Substance: BACLOFEN
     Indication: PAIN
  2. MORPHINE [Suspect]
     Active Substance: MORPHINE
  3. FENTANYL. [Suspect]
     Active Substance: FENTANYL

REACTIONS (6)
  - Dizziness [None]
  - Vomiting [None]
  - Diarrhoea [None]
  - Overdose [None]
  - Gait disturbance [None]
  - Dyspnoea [None]

NARRATIVE: CASE EVENT DATE: 20140515
